FAERS Safety Report 8765030 (Version 1)
Quarter: 2012Q4

REPORT INFORMATION
  Report Type: 
  Country: US (occurrence: US)
  Receive Date: 20120903
  Receipt Date: 20120903
  Transmission Date: 20130627
  Serious: Yes (Other)
  Sender: FDA-Public Use
  Company Number: US-BIOGENIDEC-2012BI033661

PATIENT
  Sex: Female

DRUGS (2)
  1. AVONEX [Suspect]
     Indication: MULTIPLE SCLEROSIS
     Route: 030
     Dates: start: 20010322
  2. AMPYRA [Concomitant]

REACTIONS (3)
  - Sarcoidosis [Unknown]
  - Sjogren^s syndrome [Unknown]
  - Livedo reticularis [Unknown]
